FAERS Safety Report 11893923 (Version 1)
Quarter: 2016Q1

REPORT INFORMATION
  Report Type: Spontaneous
  Country: FR (occurrence: FR)
  Receive Date: 20160107
  Receipt Date: 20160107
  Transmission Date: 20160526
  Serious: Yes (Hospitalization)
  Sender: FDA-Public Use
  Company Number: FR-PFIZER INC-2015478295

PATIENT
  Age: 46 Year
  Sex: Female

DRUGS (5)
  1. PENTASA [Concomitant]
     Active Substance: MESALAMINE
     Indication: COLITIS
     Dosage: 4 G, UNK
     Route: 048
     Dates: end: 20151103
  2. PARACETAMOL [Concomitant]
     Active Substance: ACETAMINOPHEN
     Dosage: 2 G, DAILY
  3. LAMALINE /00764901/ [Concomitant]
     Active Substance: ACETAMINOPHEN\BELLADONNA LEAF\CAFFEINE\OPIUM TINCTURE
     Dosage: 2 DF, DAILY
  4. SALAZOPYRINE [Suspect]
     Active Substance: SULFASALAZINE
     Indication: COLITIS
     Dosage: 4 G, 1X/DAY
     Route: 048
     Dates: start: 20151103, end: 20151111
  5. BROMAZEPAM [Concomitant]
     Active Substance: BROMAZEPAM
     Dosage: ONCE WEEKLY

REACTIONS (3)
  - Hepatocellular injury [Recovered/Resolved]
  - Pyrexia [Recovering/Resolving]
  - Erythema [Recovering/Resolving]

NARRATIVE: CASE EVENT DATE: 201511
